FAERS Safety Report 10736533 (Version 1)
Quarter: 2015Q1

REPORT INFORMATION
  Report Type: Report from Study
  Country: RU (occurrence: RU)
  Receive Date: 20150126
  Receipt Date: 20150126
  Transmission Date: 20150721
  Serious: Yes (Death, Life-Threatening)
  Sender: FDA-Public Use
  Company Number: RU-NOVOPROD-436278

PATIENT
  Age: 64 Year
  Sex: Female
  Weight: 59.2 kg

DRUGS (1)
  1. LIRAGLUTIDE FLEXPEN [Suspect]
     Active Substance: LIRAGLUTIDE
     Indication: TYPE 2 DIABETES MELLITUS
     Dosage: 1.8 MG, UNK
     Route: 058
     Dates: start: 20110621

REACTIONS (1)
  - Death [Fatal]

NARRATIVE: CASE EVENT DATE: 20140828
